FAERS Safety Report 20178543 (Version 2)
Quarter: 2022Q1

REPORT INFORMATION
  Report Type: Report from Study
  Country: CA (occurrence: CA)
  Receive Date: 20211214
  Receipt Date: 20220110
  Transmission Date: 20220424
  Serious: Yes (Death)
  Sender: FDA-Public Use
  Company Number: CA-PUMA BIOTECHNOLOGY, INC.-2020CA008902

PATIENT

DRUGS (1)
  1. NERLYNX [Suspect]
     Active Substance: NERATINIB
     Indication: Breast cancer metastatic
     Dosage: 120 MG, DAILY
     Route: 048
     Dates: start: 20201221, end: 20201224

REACTIONS (7)
  - Death [Fatal]
  - Illness [Unknown]
  - Feeling abnormal [Unknown]
  - Rash [Unknown]
  - Vomiting [Unknown]
  - Diarrhoea [Unknown]
  - Intentional product use issue [Unknown]

NARRATIVE: CASE EVENT DATE: 20210626
